FAERS Safety Report 19156190 (Version 1)
Quarter: 2021Q2

REPORT INFORMATION
  Report Type: Report from Study
  Country: ES (occurrence: ES)
  Receive Date: 20210419
  Receipt Date: 20210419
  Transmission Date: 20210717
  Serious: Yes (Other)
  Sender: FDA-Public Use
  Company Number: ES-INCYTE CORPORATION-2021IN003316

PATIENT

DRUGS (9)
  1. GLASDEGIB [Suspect]
     Active Substance: GLASDEGIB
     Indication: GRAFT VERSUS HOST DISEASE
     Dosage: 50 MG, QD
     Route: 048
     Dates: start: 20181126
  2. CYCLOSPORINE. [Concomitant]
     Active Substance: CYCLOSPORINE
     Indication: GRAFT VERSUS HOST DISEASE
     Dosage: UNK
     Route: 065
     Dates: start: 20180726
  3. GLASDEGIB [Suspect]
     Active Substance: GLASDEGIB
     Dosage: 50 UNK
     Route: 048
     Dates: start: 20190101, end: 20190108
  4. GLASDEGIB [Suspect]
     Active Substance: GLASDEGIB
     Dosage: 50 UNK
     Route: 048
     Dates: start: 20190118, end: 20190125
  5. JAKAVI [Suspect]
     Active Substance: RUXOLITINIB
     Indication: LEUKAEMIA
     Dosage: UNK
     Route: 048
     Dates: start: 20180718
  6. PREDNISONE. [Concomitant]
     Active Substance: PREDNISONE
     Indication: GRAFT VERSUS HOST DISEASE
     Dosage: UNK
     Route: 065
     Dates: start: 20190101
  7. VALGANCICLOVIR. [Concomitant]
     Active Substance: VALGANCICLOVIR
     Indication: CYTOMEGALOVIRUS INFECTION
     Dosage: UNK
     Route: 065
     Dates: start: 20181208
  8. GLASDEGIB [Suspect]
     Active Substance: GLASDEGIB
     Dosage: 50 UNK
     Route: 048
     Dates: start: 20190207, end: 20190226
  9. TEICOPLANINE [Concomitant]
     Active Substance: TEICOPLANIN
     Indication: BACTERAEMIA
     Dosage: UNK
     Route: 065
     Dates: start: 20190212, end: 20190220

REACTIONS (1)
  - Hepatotoxicity [Recovered/Resolved]

NARRATIVE: CASE EVENT DATE: 20190226
